FAERS Safety Report 16442420 (Version 1)
Quarter: 2019Q2

REPORT INFORMATION
  Report Type: Spontaneous
  Country: US (occurrence: US)
  Receive Date: 20190617
  Receipt Date: 20190617
  Transmission Date: 20190711
  Serious: No
  Sender: FDA-Public Use
  Company Number: US-SUNOVION-2019SUN002480

PATIENT
  Age: 55 Year
  Sex: Female

DRUGS (2)
  1. REXULTI [Concomitant]
     Active Substance: BREXPIPRAZOLE
  2. LATUDA [Suspect]
     Active Substance: LURASIDONE HYDROCHLORIDE
     Route: 048

REACTIONS (7)
  - Pain in extremity [Unknown]
  - Somnolence [Unknown]
  - Disturbance in attention [Unknown]
  - Abdominal discomfort [Unknown]
  - Feeling abnormal [Unknown]
  - Pain [Unknown]
  - Back pain [Unknown]
